FAERS Safety Report 20923637 (Version 1)
Quarter: 2022Q2

REPORT INFORMATION
  Report Type: Spontaneous
  Country: US (occurrence: US)
  Receive Date: 20220607
  Receipt Date: 20220607
  Transmission Date: 20220720
  Serious: Yes (Other)
  Sender: FDA-Public Use
  Company Number: US-BAYER-2022A079005

PATIENT
  Age: 82 Year
  Sex: Male

DRUGS (3)
  1. ASPIRIN [Suspect]
     Active Substance: ASPIRIN
  2. FOSTAMATINIB [Concomitant]
     Active Substance: FOSTAMATINIB
     Dosage: 100 MG, BID
  3. FOSTAMATINIB [Concomitant]
     Active Substance: FOSTAMATINIB
     Dosage: 150 UNK

REACTIONS (2)
  - Epistaxis [None]
  - Mouth haemorrhage [None]
